FAERS Safety Report 7014674-2 (Version None)
Quarter: 2010Q3

REPORT INFORMATION
  Report Type: 
  Country: None (occurrence: None)
  Receive Date: 20100927
  Receipt Date: 20100917
  Transmission Date: 20110219
  Serious: Yes (Other)
  Sender: FDA-Public Use
  Company Number: GB-ROCHE-727774

PATIENT
  Sex: Male

DRUGS (6)
  1. XENICAL [Suspect]
     Indication: PRODUCT USED FOR UNKNOWN INDICATION
     Route: 065
     Dates: start: 20100717
  2. PYRIDOSTIGMINE BROMIDE [Concomitant]
  3. PREDNISOLONE [Concomitant]
  4. RANITIDE [Concomitant]
  5. CALCIUM [Concomitant]
  6. AZATHIOPRINE [Concomitant]

REACTIONS (1)
  - MYASTHENIA GRAVIS [None]
